FAERS Safety Report 15109311 (Version 1)
Quarter: 2018Q3

REPORT INFORMATION
  Report Type: Spontaneous
  Country: TR (occurrence: TR)
  Receive Date: 20180705
  Receipt Date: 20180705
  Transmission Date: 20181010
  Serious: Yes (Hospitalization)
  Sender: FDA-Public Use
  Company Number: TR-PERRIGO-18TR006682

PATIENT
  Age: 9 Year
  Sex: Female

DRUGS (1)
  1. MINOXIDIL. [Suspect]
     Active Substance: MINOXIDIL
     Indication: ALOPECIA
     Dosage: UNK, UNK
     Route: 061

REACTIONS (3)
  - Sinus node dysfunction [Recovered/Resolved]
  - Syncope [Recovered/Resolved]
  - Drug administered to patient of inappropriate age [Recovered/Resolved]
